FAERS Safety Report 17008415 (Version 2)
Quarter: 2020Q4

REPORT INFORMATION
  Report Type: Report from Study
  Country: None (occurrence: CA)
  Receive Date: 20191108
  Receipt Date: 20201125
  Transmission Date: 20210113
  Serious: Yes (Other)
  Sender: FDA-Public Use
  Company Number: CA-ABBVIE-19K-028-2992961-00

PATIENT
  Age: 69 Year
  Sex: Male

DRUGS (1)
  1. HUMIRA [Suspect]
     Active Substance: ADALIMUMAB
     Indication: CROHN^S DISEASE
     Route: 058
     Dates: start: 20091120

REACTIONS (9)
  - Intestinal resection [Unknown]
  - Adhesion [Unknown]
  - Adverse food reaction [Unknown]
  - Adverse food reaction [Recovered/Resolved]
  - Arthralgia [Unknown]
  - Gastrointestinal obstruction [Recovered/Resolved]
  - Gastrointestinal obstruction [Unknown]
  - Gastrointestinal pain [Recovered/Resolved]
  - Diarrhoea [Unknown]

NARRATIVE: CASE EVENT DATE: 20191005
